FAERS Safety Report 16717229 (Version 1)
Quarter: 2019Q3

REPORT INFORMATION
  Report Type: Spontaneous
  Country: US (occurrence: US)
  Receive Date: 20190819
  Receipt Date: 20190819
  Transmission Date: 20191005
  Serious: Yes (Death, Hospitalization, Other)
  Sender: FDA-Public Use
  Company Number: US-BIODELIVERY SCIENCES INTERNATIONAL-E2B_00000960

PATIENT
  Age: 72 Year
  Sex: Male

DRUGS (1)
  1. NALDEMEDINE [Suspect]
     Active Substance: NALDEMEDINE
     Indication: CONSTIPATION
     Dosage: 0.2 MG, 1 PER 1 DAY
     Route: 065
     Dates: start: 20180428, end: 20190221

REACTIONS (5)
  - Chronic kidney disease [Fatal]
  - Loss of consciousness [Unknown]
  - Hepatic failure [Fatal]
  - Internal haemorrhage [Unknown]
  - Cardiac disorder [Fatal]

NARRATIVE: CASE EVENT DATE: 201903
